FAERS Safety Report 24292077 (Version 1)
Quarter: 2024Q3

REPORT INFORMATION
  Report Type: Spontaneous
  Country: US (occurrence: None)
  Receive Date: 20240906
  Receipt Date: 20240906
  Transmission Date: 20241017
  Serious: No
  Sender: DOMPE FARMACEUTICI
  Company Number: US-FARMAPROD-202305-1533

PATIENT
  Sex: Female

DRUGS (31)
  1. OXERVATE [Suspect]
     Active Substance: CENEGERMIN-BKBJ
     Indication: Neurotrophic keratopathy
     Route: 047
     Dates: start: 20230516, end: 20230711
  2. OXERVATE [Suspect]
     Active Substance: CENEGERMIN-BKBJ
     Route: 047
     Dates: start: 20231219
  3. OXERVATE [Suspect]
     Active Substance: CENEGERMIN-BKBJ
  4. OXERVATE [Suspect]
     Active Substance: CENEGERMIN-BKBJ
  5. STOOL SOFTENER-LAXATIVE [Concomitant]
  6. ZYRTEC [Concomitant]
     Active Substance: CETIRIZINE HYDROCHLORIDE
  7. TRAZODONE HCL [Concomitant]
     Active Substance: TRAZODONE HYDROCHLORIDE
  8. DIETARY SUPPLEMENT [Concomitant]
     Active Substance: DIETARY SUPPLEMENT
  9. FISH OIL-OMEGA-3-VIT D [Concomitant]
  10. VITAMINS [Concomitant]
     Active Substance: VITAMINS
  11. MAGNESIUM CITRATE [Concomitant]
     Active Substance: MAGNESIUM CITRATE
  12. EVENING PRIMROSE OIL\HERBALS [Concomitant]
     Active Substance: EVENING PRIMROSE OIL\HERBALS
  13. REFRESH OPTIVE MEGA-3 [Concomitant]
     Active Substance: CARBOXYMETHYLCELLULOSE SODIUM\GLYCERIN\POLYSORBATE 80
  14. CALCIUM CITRATE/VITAMIN D3 [Concomitant]
  15. GLUCOSAMINE HYDROCHLORIDE\SODIUM CHONDROITIN SULFATE [Concomitant]
     Active Substance: GLUCOSAMINE HYDROCHLORIDE\SODIUM CHONDROITIN SULFATE
     Dosage: 500-400 MG
  16. QUERCETIN [Concomitant]
     Active Substance: QUERCETIN
  17. VITAMIN C [Concomitant]
     Active Substance: ASCORBIC ACID
  18. LUTEIN [Concomitant]
     Active Substance: LUTEIN
  19. ZINC [Concomitant]
     Active Substance: ZINC
  20. ALPHA LIPOIC ACID [Concomitant]
     Active Substance: .ALPHA.-LIPOIC ACID
  21. COLLAGEN-VITAMIN C [Concomitant]
     Dosage: 1 G-10 MG
  22. BIOTIN [Concomitant]
     Active Substance: BIOTIN
     Dosage: DISINTEGRATING TABLETS
  23. REPATHA [Concomitant]
     Active Substance: EVOLOCUMAB
  24. REFRESH P.M. [Concomitant]
     Active Substance: MINERAL OIL\PETROLATUM
     Dosage: 42.5-57.3%
  25. RANOLAZINE [Concomitant]
     Active Substance: RANOLAZINE
     Dosage: EXTENDED RELEASE FOR 12 HOURS
  26. ASPIRIN [Concomitant]
     Active Substance: ASPIRIN
     Dosage: DELAYED RELEASE
  27. TIMOLOL MALEATE [Concomitant]
     Active Substance: TIMOLOL MALEATE
  28. OFLOXACIN [Concomitant]
     Active Substance: OFLOXACIN
  29. FLAREX [Concomitant]
     Active Substance: FLUOROMETHOLONE ACETATE
  30. TROSPIUM CHLORIDE [Concomitant]
     Active Substance: TROSPIUM CHLORIDE
  31. SERUM TEARS [Concomitant]

REACTIONS (8)
  - Periorbital pain [Unknown]
  - Photophobia [Not Recovered/Not Resolved]
  - Eye pain [Unknown]
  - Foreign body sensation in eyes [Not Recovered/Not Resolved]
  - Lacrimation increased [Unknown]
  - Eye irritation [Unknown]
  - Product dose omission issue [Unknown]
  - Corneal abrasion [Unknown]
